FAERS Safety Report 8284759 (Version 5)
Quarter: 2013Q2

REPORT INFORMATION
  Report Type: Spontaneous
  Country: US (occurrence: US)
  Receive Date: 20111212
  Receipt Date: 20130405
  Transmission Date: 20140414
  Serious: Yes (Other)
  Sender: FDA-Public Use
  Company Number: US-ASTRAZENECA-2011SE71234

PATIENT
  Age: 61 Year
  Sex: Female
  Weight: 99.8 kg

DRUGS (23)
  1. SEROQUEL XR [Suspect]
     Indication: BIPOLAR DISORDER
     Route: 048
     Dates: start: 2006
  2. SEROQUEL XR [Suspect]
     Indication: DEPRESSION
     Route: 048
     Dates: start: 2006
  3. SEROQUEL XR [Suspect]
     Indication: BIPOLAR DISORDER
     Route: 048
  4. SEROQUEL XR [Suspect]
     Indication: DEPRESSION
     Route: 048
  5. SEROQUEL XR [Suspect]
     Indication: BIPOLAR DISORDER
     Route: 048
  6. SEROQUEL XR [Suspect]
     Indication: DEPRESSION
     Route: 048
  7. SEROQUEL XR [Suspect]
     Indication: BIPOLAR DISORDER
     Route: 048
  8. SEROQUEL XR [Suspect]
     Indication: DEPRESSION
     Route: 048
  9. CRESTOR [Suspect]
     Indication: HYPERCHOLESTEROLAEMIA
     Route: 048
  10. LISINOPRIL [Suspect]
     Indication: HYPERTENSION
     Route: 048
     Dates: start: 2012
  11. METFORMIN [Concomitant]
     Indication: DIABETES MELLITUS
     Route: 048
  12. CYMBALTA [Concomitant]
     Indication: DEPRESSION
     Route: 048
  13. ARMOUR THYROID [Concomitant]
     Indication: THYROID DISORDER
     Route: 048
  14. TRAMADOL [Concomitant]
     Indication: SCIATICA
     Route: 048
  15. KLONAPIN [Concomitant]
     Indication: ANXIETY
     Route: 048
  16. KLONAPIN [Concomitant]
     Indication: INSOMNIA
     Route: 048
  17. KLONAPIN [Concomitant]
     Indication: ANXIETY
     Dosage: SHE CUD ADD ONE TABLET EVERY AFTERNOON
     Route: 048
  18. KLONAPIN [Concomitant]
     Indication: INSOMNIA
     Dosage: SHE CUD ADD ONE TABLET EVERY AFTERNOON
     Route: 048
  19. NATURAL HORMONE COMPOUNDED OF PROGESTERONE AND ESTROGEN [Concomitant]
     Indication: HORMONE REPLACEMENT THERAPY
     Route: 048
  20. CREAM GM CR CMPD [Concomitant]
     Indication: OESTROGEN THERAPY
     Route: 061
  21. ACYCLOVIR [Concomitant]
     Indication: GENITAL HERPES
     Route: 048
  22. VITAMIN D [Concomitant]
     Indication: VITAMIN SUPPLEMENTATION
     Route: 048
  23. LAMOTRIGINE [Concomitant]
     Route: 048

REACTIONS (17)
  - Upper limb fracture [Unknown]
  - Fall [Unknown]
  - Gait disturbance [Unknown]
  - Back injury [Unknown]
  - Joint swelling [Unknown]
  - Malaise [Unknown]
  - Mental disorder [Unknown]
  - Malaise [Unknown]
  - Hot flush [Unknown]
  - Hyperhidrosis [Unknown]
  - Blood pressure increased [Unknown]
  - Sleep disorder [Unknown]
  - Nausea [Unknown]
  - Intentional drug misuse [Unknown]
  - Drug dose omission [Unknown]
  - Drug ineffective [Unknown]
  - Therapeutic response unexpected [Unknown]
